FAERS Safety Report 14820436 (Version 3)
Quarter: 2018Q2

REPORT INFORMATION
  Report Type: Report from Study
  Country: CN (occurrence: CN)
  Receive Date: 20180427
  Receipt Date: 20180522
  Transmission Date: 20180711
  Serious: Yes (Death, Other)
  Sender: FDA-Public Use
  Company Number: PHHY2018CN074087

PATIENT
  Age: 75 Year
  Sex: Male

DRUGS (1)
  1. GLIVEC [Suspect]
     Active Substance: IMATINIB MESYLATE
     Indication: GASTROINTESTINAL STROMAL TUMOUR
     Dosage: 400 MG, QD
     Route: 048
     Dates: start: 20171024, end: 20180414

REACTIONS (44)
  - Blood calcium increased [Unknown]
  - Blood urea increased [Unknown]
  - Hypertension [Unknown]
  - Mitral valve incompetence [Unknown]
  - Gastrointestinal stromal tumour [Unknown]
  - Chest discomfort [Unknown]
  - Effusion [Unknown]
  - Ascites [Unknown]
  - Pericardial effusion [Unknown]
  - Electrocardiogram ST segment abnormal [Unknown]
  - General physical health deterioration [Fatal]
  - Multiple organ dysfunction syndrome [Unknown]
  - Cardiac dysfunction [Unknown]
  - Aortic valve incompetence [Unknown]
  - Aspartate aminotransferase increased [Unknown]
  - Blood bilirubin increased [Unknown]
  - Blood pressure abnormal [Unknown]
  - Blood creatine phosphokinase increased [Unknown]
  - Malignant neoplasm progression [Unknown]
  - Renal cyst [Unknown]
  - Tricuspid valve incompetence [Unknown]
  - Renal failure [Unknown]
  - Hepatic calcification [Unknown]
  - Coronary artery stenosis [Unknown]
  - Gallbladder oedema [Unknown]
  - Blood uric acid increased [Unknown]
  - Blood creatinine increased [Unknown]
  - Coagulation factor deficiency [Unknown]
  - Arrhythmia [Unknown]
  - Acute myocardial infarction [Unknown]
  - Cardiac failure [Unknown]
  - Gallbladder cholesterolosis [Unknown]
  - C-reactive protein increased [Unknown]
  - Alanine aminotransferase increased [Unknown]
  - Blood lactate dehydrogenase increased [Unknown]
  - Myocarditis [Unknown]
  - Hepatic failure [Unknown]
  - Cardiogenic shock [Unknown]
  - Left ventricular enlargement [Unknown]
  - Pyrexia [Unknown]
  - Pleural effusion [Unknown]
  - Small intestine carcinoma [Unknown]
  - Eyelid oedema [Unknown]
  - Arteriosclerosis coronary artery [Unknown]

NARRATIVE: CASE EVENT DATE: 20180411
